FAERS Safety Report 18471369 (Version 1)
Quarter: 2020Q4

REPORT INFORMATION
  Report Type: Spontaneous
  Country: FR (occurrence: FR)
  Receive Date: 20201106
  Receipt Date: 20201106
  Transmission Date: 20210114
  Serious: Yes (Life-Threatening, Hospitalization)
  Sender: FDA-Public Use
  Company Number: FR-TEVA-2018-FR-878561

PATIENT
  Age: 71 Year
  Sex: Male
  Weight: 120 kg

DRUGS (7)
  1. ATENOLOL. [Concomitant]
     Active Substance: ATENOLOL
     Route: 048
  2. RAMIPRIL. [Suspect]
     Active Substance: RAMIPRIL
     Indication: ACUTE KIDNEY INJURY
     Route: 048
     Dates: start: 20170901, end: 20170929
  3. VITAMINE B12 [Concomitant]
     Active Substance: CYANOCOBALAMIN
     Route: 048
  4. LANTUS 100 UNITES/ML, SOLUTION INJECTABLE EN STYLO PREREMPLI [Concomitant]
     Route: 058
  5. AMLOR 10 MG, GELULE [Concomitant]
     Active Substance: AMLODIPINE BESYLATE
     Route: 048
  6. ZYMAD 80 000 UI, SOLUTION BUVABLE EN AMPOULE [Concomitant]
     Active Substance: CHOLECALCIFEROL
     Route: 048
  7. GALVUS 50 MG, COMPRIME [Concomitant]
     Active Substance: VILDAGLIPTIN
     Route: 048

REACTIONS (2)
  - Hyperkalaemia [Recovered/Resolved]
  - Blood creatinine increased [Recovered/Resolved with Sequelae]

NARRATIVE: CASE EVENT DATE: 20170925
